FAERS Safety Report 5175612-0 (Version None)
Quarter: 2006Q4

REPORT INFORMATION
  Report Type: 
  Country: None (occurrence: None)
  Receive Date: 20061215
  Receipt Date: 20060914
  Transmission Date: 20070319
  Serious: Yes (Hospitalization)
  Sender: FDA-Public Use
  Company Number: CA-AMGEN-KDL193664

PATIENT
  Sex: Female

DRUGS (12)
  1. ENBREL [Suspect]
     Indication: RHEUMATOID ARTHRITIS
     Route: 058
     Dates: start: 20060205, end: 20060830
  2. METHOTREXATE [Suspect]
     Dates: start: 20050211, end: 20060901
  3. PREDNISONE TAB [Concomitant]
  4. IMURAN [Concomitant]
  5. PERINDOPRIL ERBUMINE [Concomitant]
  6. HYDRODIURIL [Concomitant]
  7. ALDACTONE [Concomitant]
  8. CALCIUM [Concomitant]
  9. VITAMIN D [Concomitant]
  10. LOPRESSOR [Concomitant]
  11. FOSAMAX [Concomitant]
  12. ASAPHEN [Concomitant]

REACTIONS (6)
  - LEFT VENTRICULAR FAILURE [None]
  - MIXED CONNECTIVE TISSUE DISEASE [None]
  - MYOCARDITIS [None]
  - MYOPATHY [None]
  - PULMONARY FIBROSIS [None]
  - PULMONARY HYPERTENSION [None]
